FAERS Safety Report 4690252-5 (Version None)
Quarter: 2005Q2

REPORT INFORMATION
  Report Type: 
  Country: None (occurrence: None)
  Receive Date: 20050615
  Receipt Date: 20050309
  Transmission Date: 20051028
  Serious: Yes (Hospitalization, Disabling)
  Sender: FDA-Public Use
  Company Number: US-MERCK-0503USA01784

PATIENT
  Age: 52 Year
  Sex: Female
  Weight: 64 kg

DRUGS (3)
  1. VIOXX [Suspect]
     Indication: CARPAL TUNNEL SYNDROME
     Route: 048
     Dates: start: 20030201, end: 20040901
  2. ADVIL [Concomitant]
     Indication: CARPAL TUNNEL SYNDROME
     Route: 065
     Dates: start: 20030201
  3. ASPIRIN [Concomitant]
     Route: 065
     Dates: start: 20030101

REACTIONS (11)
  - CARPAL TUNNEL SYNDROME [None]
  - CEREBROVASCULAR ACCIDENT [None]
  - CHEST PAIN [None]
  - DIZZINESS [None]
  - EMOTIONAL DISTRESS [None]
  - HEADACHE [None]
  - HYPERTENSION [None]
  - MYOCARDIAL INFARCTION [None]
  - ROAD TRAFFIC ACCIDENT [None]
  - THYROID DISORDER [None]
  - VISION BLURRED [None]
